FAERS Safety Report 7925419-3 (Version None)
Quarter: 2011Q4

REPORT INFORMATION
  Report Type: 
  Country: None (occurrence: None)
  Receive Date: 20111118
  Receipt Date: 20110406
  Transmission Date: 20120403
  Serious: No
  Sender: FDA-Public Use
  Company Number: US-AMGEN-USASP2011018341

PATIENT
  Age: 58 Year
  Sex: Male

DRUGS (1)
  1. ENBREL [Suspect]
     Indication: PSORIATIC ARTHROPATHY
     Dosage: 50 MG, QWK
     Dates: start: 20100322

REACTIONS (8)
  - GINGIVAL PAIN [None]
  - GINGIVITIS [None]
  - TOOTH FRACTURE [None]
  - DENTAL PLAQUE [None]
  - COAGULOPATHY [None]
  - PERIODONTAL DISEASE [None]
  - GINGIVAL BLEEDING [None]
  - BONE LOSS [None]
